FAERS Safety Report 8354890-0 (Version None)
Quarter: 2012Q2

REPORT INFORMATION
  Report Type: 
  Country: None (occurrence: None)
  Receive Date: 20120511
  Receipt Date: 20120501
  Transmission Date: 20120825
  Serious: Yes (Hospitalization)
  Sender: FDA-Public Use
  Company Number: CA-ROCHE-1064985

PATIENT
  Age: 27 Year
  Sex: Female
  Weight: 45.4 kg

DRUGS (3)
  1. ESCITALOPRAM [Interacting]
     Indication: PRODUCT USED FOR UNKNOWN INDICATION
     Route: 048
  2. TAMIFLU [Suspect]
     Indication: PRODUCT USED FOR UNKNOWN INDICATION
     Route: 048
  3. CLONAZEPAM [Concomitant]
     Route: 048

REACTIONS (9)
  - DIZZINESS [None]
  - RESTLESSNESS [None]
  - SEROTONIN SYNDROME [None]
  - CLONUS [None]
  - TREMOR [None]
  - DRUG INTERACTION [None]
  - AUTONOMIC NERVOUS SYSTEM IMBALANCE [None]
  - HYPERREFLEXIA [None]
  - MYDRIASIS [None]
